FAERS Safety Report 16968882 (Version 1)
Quarter: 2019Q4

REPORT INFORMATION
  Report Type: Spontaneous
  Country: US (occurrence: US)
  Receive Date: 20191029
  Receipt Date: 20191029
  Transmission Date: 20200122
  Serious: Yes (Other)
  Sender: FDA-Public Use
  Company Number: US-HIKMA PHARMACEUTICALS USA INC.-US-H14001-19-05536

PATIENT
  Age: 35 Year
  Sex: Female

DRUGS (3)
  1. FENTANYL. [Suspect]
     Active Substance: FENTANYL
     Indication: ANAESTHESIA
  2. MORPHINE [Suspect]
     Active Substance: MORPHINE
     Indication: ANAESTHESIA
  3. HYPERBARIC BUPIVACAINE [Suspect]
     Active Substance: BUPIVACAINE
     Indication: ANAESTHESIA

REACTIONS (3)
  - Eclampsia [Recovering/Resolving]
  - Posterior reversible encephalopathy syndrome [Recovering/Resolving]
  - Maternal exposure during delivery [Unknown]
